FAERS Safety Report 18271022 (Version 1)
Quarter: 2020Q3

REPORT INFORMATION
  Report Type: Spontaneous
  Country: US (occurrence: US)
  Receive Date: 20200915
  Receipt Date: 20200915
  Transmission Date: 20201103
  Serious: Yes (Other)
  Sender: FDA-Public Use
  Company Number: US-PURDUE-USA-2020-0166065

PATIENT
  Sex: Male

DRUGS (27)
  1. OXYCONTIN [Suspect]
     Active Substance: OXYCODONE HYDROCHLORIDE
     Indication: NECK INJURY
     Dosage: 20 MG, BID
     Route: 048
  2. OXYCODONE HCL CR TABLETS (SIMILAR TO NDA 22?272) [Suspect]
     Active Substance: OXYCODONE HYDROCHLORIDE
     Indication: NECK PAIN
     Dosage: 10 MG, Q12H
     Route: 048
  3. OXYCODONE HCL CR TABLETS (SIMILAR TO NDA 22?272) [Suspect]
     Active Substance: OXYCODONE HYDROCHLORIDE
     Dosage: 20 MG, Q12H
     Route: 048
  4. OXYCODONE HCL TABLETS (RHODES 91?490) [Suspect]
     Active Substance: OXYCODONE HYDROCHLORIDE
     Indication: PRODUCT USED FOR UNKNOWN INDICATION
     Dosage: 5 MG, UNK
     Route: 048
  5. OXYCODONE/ ACETAMINOPHEN TABLETS [Suspect]
     Active Substance: ACETAMINOPHEN\OXYCODONE HYDROCHLORIDE
     Indication: PAIN
     Dosage: 330 MG, TID
     Route: 048
  6. VICODIN [Suspect]
     Active Substance: ACETAMINOPHEN\HYDROCODONE BITARTRATE
     Indication: PRODUCT USED FOR UNKNOWN INDICATION
     Dosage: 330 MG, UNK
     Route: 048
  7. CHLORPHENIRAMINE W/HYDROCODONE [Concomitant]
     Active Substance: CHLORPHENIRAMINE\HYDROCODONE
     Indication: PRODUCT USED FOR UNKNOWN INDICATION
     Dosage: UNKNOWN
     Route: 048
  8. OXYCONTIN [Suspect]
     Active Substance: OXYCODONE HYDROCHLORIDE
     Dosage: 20 MG, Q12H
     Route: 048
  9. OXYCONTIN [Suspect]
     Active Substance: OXYCODONE HYDROCHLORIDE
     Dosage: 10 MG, DAILY
     Route: 048
  10. OXYCODONE HCL CR TABLETS (SIMILAR TO NDA 22?272) [Suspect]
     Active Substance: OXYCODONE HYDROCHLORIDE
     Dosage: 10 MG, DAILY
     Route: 048
  11. HYDROCODONE BITARTRATE AND ACETAMINOPHEN [Suspect]
     Active Substance: ACETAMINOPHEN\HYDROCODONE BITARTRATE
     Indication: PAIN
     Dosage: 505 MG, UNK
     Route: 048
  12. HYDROCODONE BITARTRATE AND ACETAMINOPHEN [Suspect]
     Active Substance: ACETAMINOPHEN\HYDROCODONE BITARTRATE
     Dosage: 330 MG, Q4H PRN
     Route: 048
  13. HYDROCODONE BITARTRATE AND ACETAMINOPHEN [Suspect]
     Active Substance: ACETAMINOPHEN\HYDROCODONE BITARTRATE
     Dosage: 330 MG, Q6H
     Route: 048
  14. NORTRIPTYLINE [Concomitant]
     Active Substance: NORTRIPTYLINE
     Indication: PRODUCT USED FOR UNKNOWN INDICATION
     Dosage: UNKNOWN
     Route: 048
  15. OXYCONTIN [Suspect]
     Active Substance: OXYCODONE HYDROCHLORIDE
     Indication: NECK PAIN
     Dosage: 10 MG, Q12H
     Route: 048
  16. OXYCONTIN [Suspect]
     Active Substance: OXYCODONE HYDROCHLORIDE
     Dosage: 20 MG, DAILY
     Route: 048
  17. AMBIEN [Concomitant]
     Active Substance: ZOLPIDEM TARTRATE
     Indication: INSOMNIA
     Dosage: 10 MG, HS
     Route: 048
  18. ZANAFLEX [Concomitant]
     Active Substance: TIZANIDINE HYDROCHLORIDE
     Indication: NECK PAIN
     Dosage: 4 MG, HS
     Route: 048
  19. LIDODERM [Concomitant]
     Active Substance: LIDOCAINE
     Indication: NECK PAIN
     Dosage: 1 PATCH, Q24H
     Route: 062
  20. ULTRAM [Suspect]
     Active Substance: TRAMADOL HYDROCHLORIDE
     Indication: NECK PAIN
     Dosage: UNKNOWN
     Route: 048
  21. KEPPRA [Concomitant]
     Active Substance: LEVETIRACETAM
     Indication: SEIZURE
     Dosage: 500 MG, BID
     Route: 048
  22. OXYCODONE HCL CR TABLETS (SIMILAR TO NDA 22?272) [Suspect]
     Active Substance: OXYCODONE HYDROCHLORIDE
     Dosage: 20 MG, DAILY
     Route: 048
  23. TRAMADOL. [Suspect]
     Active Substance: TRAMADOL
     Indication: NECK PAIN
     Dosage: UNKNOWN
     Route: 048
  24. ENDOCET [Suspect]
     Active Substance: ACETAMINOPHEN\OXYCODONE HYDROCHLORIDE
     Indication: PAIN
     Dosage: 330 MG, UNK
     Route: 048
  25. ZONEGRAN [Concomitant]
     Active Substance: ZONISAMIDE
     Indication: PRODUCT USED FOR UNKNOWN INDICATION
     Dosage: UNKNOWN
     Route: 048
  26. DAYPRO [Concomitant]
     Active Substance: OXAPROZIN
     Indication: NECK PAIN
     Dosage: 1200 MG, AM
     Route: 048
  27. MOBIC [Concomitant]
     Active Substance: MELOXICAM
     Indication: NECK PAIN
     Dosage: 2 TABLET, DAILY
     Route: 048

REACTIONS (33)
  - Facet joint block [Unknown]
  - Cardiac disorder [Unknown]
  - Drug dependence [Unknown]
  - Mental disorder [Unknown]
  - Abnormal behaviour [Unknown]
  - Myofascial pain syndrome [Unknown]
  - Suicidal ideation [Unknown]
  - Spinal operation [Unknown]
  - Drug tolerance [Unknown]
  - Depression [Unknown]
  - Hypoaesthesia [Unknown]
  - Spinal osteoarthritis [Unknown]
  - Paraesthesia [Unknown]
  - Insomnia [Unknown]
  - Pericarditis [Unknown]
  - Dyspepsia [Unknown]
  - Neuralgia [Unknown]
  - Drug abuse [Unknown]
  - Intentional self-injury [Unknown]
  - Pain [Unknown]
  - Drug withdrawal syndrome [Unknown]
  - Underweight [Unknown]
  - Dyspnoea [Unknown]
  - Antisocial behaviour [Unknown]
  - Neck pain [Unknown]
  - Headache [Unknown]
  - Cervicogenic headache [Unknown]
  - Overdose [Unknown]
  - Erectile dysfunction [Unknown]
  - Suicide attempt [Unknown]
  - Nerve block [Unknown]
  - Loss of personal independence in daily activities [Unknown]
  - Weight decreased [Unknown]
